FAERS Safety Report 14037777 (Version 2)
Quarter: 2017Q4

REPORT INFORMATION
  Report Type: Report from Study
  Country: BR (occurrence: BR)
  Receive Date: 20171004
  Receipt Date: 20171102
  Transmission Date: 20180321
  Serious: Yes (Other)
  Sender: FDA-Public Use
  Company Number: PHHY2017BR143809

PATIENT
  Sex: Female
  Weight: 70 kg

DRUGS (4)
  1. EXELON PATCH [Suspect]
     Active Substance: RIVASTIGMINE
     Indication: DEMENTIA ALZHEIMER^S TYPE
     Dosage: 4.6 MG, QD PATCH 5 (CM2) EVERY NIGHT
     Route: 062
  2. GALANTAMINE. [Concomitant]
     Active Substance: GALANTAMINE
     Indication: PRODUCT USED FOR UNKNOWN INDICATION
     Route: 065
  3. RISPERIDONE. [Concomitant]
     Active Substance: RISPERIDONE
     Indication: SEDATIVE THERAPY
     Dosage: 1.5 DF, QD (5 YEARS AGO)
     Route: 048
  4. DONAREN [Concomitant]
     Active Substance: TRAZODONE HYDROCHLORIDE
     Indication: SEDATIVE THERAPY
     Dosage: 1.5 DF, QD (5 YEARS AGO)
     Route: 048

REACTIONS (6)
  - Gait inability [Not Recovered/Not Resolved]
  - Aggression [Unknown]
  - Drug effect delayed [Unknown]
  - Agitation [Unknown]
  - Insomnia [Recovering/Resolving]
  - Fear [Unknown]
